FAERS Safety Report 15335809 (Version 2)
Quarter: 2020Q3

REPORT INFORMATION
  Report Type: Report from Study
  Country: AU (occurrence: AU)
  Receive Date: 20180830
  Receipt Date: 20180912
  Transmission Date: 20201105
  Serious: Yes (Hospitalization)
  Sender: FDA-Public Use
  Company Number: AU-ASTRAZENECA-2018SF09025

PATIENT
  Age: 20960 Day
  Sex: Female
  Weight: 73.2 kg

DRUGS (7)
  1. CARBOPLATIN. [Suspect]
     Active Substance: CARBOPLATIN
     Indication: OVARIAN CANCER
     Route: 042
     Dates: start: 20180816
  2. TREMELIMUMAB. [Suspect]
     Active Substance: TREMELIMUMAB
     Indication: OVARIAN CANCER
     Route: 042
     Dates: start: 20180816
  3. PACLITAXEL. [Suspect]
     Active Substance: PACLITAXEL
     Indication: OVARIAN CANCER
     Route: 042
     Dates: start: 20180816
  4. THYROXINE [Concomitant]
     Active Substance: LEVOTHYROXINE
     Indication: HYPOTHYROIDISM
     Route: 048
  5. MEDI4736 [Suspect]
     Active Substance: DURVALUMAB
     Indication: OVARIAN CANCER
     Route: 042
     Dates: start: 20180816
  6. SODIUM VALPROATE [Concomitant]
     Active Substance: VALPROATE SODIUM
     Indication: EPILEPSY
     Route: 048
  7. CARBAMAZEPINE. [Concomitant]
     Active Substance: CARBAMAZEPINE
     Indication: EPILEPSY
     Route: 048

REACTIONS (1)
  - Febrile neutropenia [Recovered/Resolved]

NARRATIVE: CASE EVENT DATE: 20180827
